FAERS Safety Report 25274647 (Version 1)
Quarter: 2025Q2

REPORT INFORMATION
  Report Type: Spontaneous
  Country: US (occurrence: None)
  Receive Date: 20250506
  Receipt Date: 20250506
  Transmission Date: 20250717
  Serious: Yes (Life-Threatening, Hospitalization)
  Sender: FDA-CTU
  Company Number: None

PATIENT
  Age: 60 Year
  Sex: Female
  Weight: 90.5 kg

DRUGS (4)
  1. SEMAGLUTIDE [Suspect]
     Active Substance: SEMAGLUTIDE
     Indication: Weight decreased
     Route: 058
     Dates: start: 20250130, end: 20250202
  2. ATORVASTATIN [Concomitant]
     Active Substance: ATORVASTATIN
  3. oxycodone 5 mg q6h prn [Concomitant]
  4. opmeprazole 20 mg daily [Concomitant]

REACTIONS (4)
  - Dyspepsia [None]
  - Constipation [None]
  - Somnolence [None]
  - Ileus [None]

NARRATIVE: CASE EVENT DATE: 20250202
